FAERS Safety Report 8791377 (Version 1)
Quarter: 2012Q4

REPORT INFORMATION
  Report Type: Spontaneous
  Country: US (occurrence: None)
  Receive Date: 20120912
  Receipt Date: 20120912
  Transmission Date: 20130627
  Serious: Yes (Hospitalization, Other)
  Sender: FDA-Public Use
  Company Number: 2012MA010708

PATIENT
  Age: 63 Year
  Sex: Male

DRUGS (8)
  1. CARBOPLATIN [Suspect]
     Indication: MELANOMA
     Route: 042
     Dates: start: 201104
  2. PACLITAXEL [Suspect]
     Indication: MELANOMA
     Route: 042
     Dates: start: 201104
  3. TEMOZOLOMIDE [Concomitant]
  4. IPILIMUMAB [Concomitant]
  5. IMC-20D7S [Concomitant]
  6. CISPLATIN [Concomitant]
  7. VINBLASTINE [Concomitant]
  8. TEMOZOLOMIDE [Concomitant]

REACTIONS (3)
  - Chest discomfort [None]
  - Blood pressure increased [None]
  - ECG signs of myocardial ischaemia [None]
